FAERS Safety Report 12435084 (Version 1)
Quarter: 2016Q2

REPORT INFORMATION
  Report Type: Spontaneous
  Country: US (occurrence: US)
  Receive Date: 20160603
  Receipt Date: 20160603
  Transmission Date: 20160815
  Serious: Yes (Hospitalization)
  Sender: FDA-Public Use
  Company Number: US-ROCHE-1590868

PATIENT
  Sex: Female

DRUGS (1)
  1. XELODA [Suspect]
     Active Substance: CAPECITABINE
     Indication: PRODUCT USED FOR UNKNOWN INDICATION
     Dosage: 14 DAYS, Q 21 DAYS
     Route: 048
     Dates: start: 20150409, end: 20150605

REACTIONS (3)
  - Vomiting [Unknown]
  - Intestinal obstruction [Unknown]
  - Decreased appetite [Unknown]
